FAERS Safety Report 11863687 (Version 1)
Quarter: 2015Q4

REPORT INFORMATION
  Report Type: Spontaneous
  Country: FR (occurrence: FR)
  Receive Date: 20151223
  Receipt Date: 20151223
  Transmission Date: 20160305
  Serious: Yes (Other)
  Sender: FDA-Public Use
  Company Number: FR-WATSON-2015-27675

PATIENT
  Age: 69 Year
  Sex: Male

DRUGS (7)
  1. RAPAFLO [Suspect]
     Active Substance: SILODOSIN
     Indication: BENIGN PROSTATIC HYPERPLASIA
     Dosage: 0.5 DF, DAILY
     Route: 048
     Dates: start: 20151205
  2. RAPAFLO [Suspect]
     Active Substance: SILODOSIN
     Indication: DYSURIA
     Dosage: 1 DF, SINGLE
     Route: 048
     Dates: start: 20151202, end: 20151202
  3. TRAMADOL. [Concomitant]
     Active Substance: TRAMADOL
     Indication: INTERVERTEBRAL DISC PROTRUSION
     Dosage: UNK, UNKNOWN
     Route: 065
  4. NSAID^S [Concomitant]
     Active Substance: UNSPECIFIED INGREDIENT
     Indication: SCIATICA
  5. RAPAFLO [Suspect]
     Active Substance: SILODOSIN
     Dosage: 1 DF, DAILY
     Route: 048
     Dates: start: 201505, end: 201511
  6. NSAID^S [Concomitant]
     Active Substance: UNSPECIFIED INGREDIENT
     Indication: INTERVERTEBRAL DISC PROTRUSION
     Dosage: UNK, UNKNOWN
     Route: 065
  7. TRAMADOL. [Concomitant]
     Active Substance: TRAMADOL
     Indication: SCIATICA

REACTIONS (13)
  - Feeling hot [Unknown]
  - Fall [Recovered/Resolved]
  - Tachycardia [Recovered/Resolved]
  - Dizziness [Unknown]
  - Malaise [Recovered/Resolved]
  - Blood potassium increased [None]
  - Fatigue [Recovered/Resolved]
  - Nausea [Unknown]
  - Intentional product use issue [None]
  - Vision blurred [Recovered/Resolved]
  - Headache [Recovered/Resolved]
  - Intentional product misuse [Unknown]
  - Therapy cessation [None]

NARRATIVE: CASE EVENT DATE: 20151203
